FAERS Safety Report 8194528-9 (Version None)
Quarter: 2012Q1

REPORT INFORMATION
  Report Type: 
  Country: None (occurrence: None)
  Receive Date: 20120308
  Receipt Date: 20110524
  Transmission Date: 20120608
  Serious: No
  Sender: FDA-Public Use
  Company Number: US-GLAXOSMITHKLINE-A0928876A

PATIENT
  Age: 54 Year
  Sex: Female

DRUGS (2)
  1. NICOTINE POLACRILEX [Suspect]
     Indication: EX-TOBACCO USER
     Dates: start: 20110521
  2. NICORETTE [Suspect]

REACTIONS (4)
  - INTENTIONAL DRUG MISUSE [None]
  - STOMATITIS [None]
  - DRUG ADMINISTRATION ERROR [None]
  - ORAL PAIN [None]
